FAERS Safety Report 4594789-9 (Version None)
Quarter: 2005Q1

REPORT INFORMATION
  Report Type: 
  Country: None (occurrence: None)
  Receive Date: 20050223
  Receipt Date: 20050208
  Transmission Date: 20050727
  Serious: Yes (Hospitalization)
  Sender: FDA-Public Use
  Company Number: 10219

PATIENT
  Age: 66 Year
  Sex: Male

DRUGS (2)
  1. METHOTREXATE [Suspect]
     Indication: RHEUMATOID ARTHRITIS
     Dosage: 10 MG WEEKLY
     Dates: start: 20020925
  2. LEFLUNOMIDE [Concomitant]

REACTIONS (4)
  - ALVEOLITIS [None]
  - PULMONARY FIBROSIS [None]
  - RESPIRATORY ARREST [None]
  - RESPIRATORY FAILURE [None]
